FAERS Safety Report 5262718-0 (Version None)
Quarter: 2007Q1

REPORT INFORMATION
  Report Type: 
  Country: None (occurrence: None)
  Receive Date: 20070308
  Receipt Date: 20070223
  Transmission Date: 20070707
  Serious: Yes (Hospitalization)
  Sender: FDA-Public Use
  Company Number: 228078

PATIENT
  Age: 64 Year
  Sex: Male

DRUGS (8)
  1. RITUXAN [Suspect]
     Indication: NON-HODGKIN'S LYMPHOMA
     Dosage: 640 MG, QD INTRAVENOUS
     Route: 042
     Dates: start: 20060510
  2. ADRIAMYCIN PFS [Suspect]
     Indication: NON-HODGKIN'S LYMPHOMA
     Dosage: 86 MG INTRAVENOUS
     Route: 042
     Dates: start: 20060512
  3. CYCLOPHOSPHAMIDE [Suspect]
     Indication: NON-HODGKIN'S LYMPHOMA
     Dosage: 1250 MG INTRAVENOUS
     Route: 042
     Dates: start: 20060512
  4. ONCOVIN [Suspect]
     Indication: NON-HODGKIN'S LYMPHOMA
     Dosage: 2 MG INTRAVENOUS
     Route: 042
     Dates: start: 20060512
  5. PREDNISOLONE [Suspect]
     Indication: NON-HODGKIN'S LYMPHOMA
     Dosage: 500 MG ORAL
     Route: 048
     Dates: start: 20060512
  6. METHYLCOBALAMIN (CYANOCOBALAMIN) [Concomitant]
  7. HYTRIL (GRANISETRON HYDROCHLORIDE) [Concomitant]
  8. LAFUTIDINE (LAFUTIDINE) [Concomitant]

REACTIONS (1)
  - PNEUMOCYSTIS JIROVECI PNEUMONIA [None]
